FAERS Safety Report 21535112 (Version 1)
Quarter: 2022Q4

REPORT INFORMATION
  Report Type: Report from Study
  Country: US (occurrence: US)
  Receive Date: 20221101
  Receipt Date: 20221101
  Transmission Date: 20230113
  Serious: Yes (Other)
  Sender: FDA-Public Use
  Company Number: US-INTRA-CELLULAR THERAPIES, INC.-2022ICT01488

PATIENT
  Sex: Female

DRUGS (1)
  1. CAPLYTA [Suspect]
     Active Substance: LUMATEPERONE
     Dosage: UNK

REACTIONS (7)
  - Repetitive speech [Unknown]
  - Dyskinesia [Unknown]
  - Migraine [Unknown]
  - Muscular weakness [Unknown]
  - Stereotypy [Unknown]
  - Skin wound [Unknown]
  - Pruritus [Unknown]
